FAERS Safety Report 11204896 (Version 1)
Quarter: 2015Q2

REPORT INFORMATION
  Report Type: Report from Study
  Country: US (occurrence: US)
  Receive Date: 20150622
  Receipt Date: 20150622
  Transmission Date: 20150821
  Serious: Yes (Hospitalization, Other)
  Sender: FDA-Public Use
  Company Number: US-ABBVIE-15K-163-1410002-00

PATIENT
  Age: 57 Year
  Sex: Male

DRUGS (1)
  1. HUMIRA [Suspect]
     Active Substance: ADALIMUMAB
     Indication: PSORIATIC ARTHROPATHY
     Route: 065
     Dates: start: 20140101

REACTIONS (10)
  - Rib fracture [Recovered/Resolved]
  - Post concussion syndrome [Recovering/Resolving]
  - Pneumothorax traumatic [Recovered/Resolved]
  - Fall [Unknown]
  - Road traffic accident [Unknown]
  - Traumatic haemothorax [Unknown]
  - Joint dislocation [Unknown]
  - Wrong technique in drug usage process [Recovering/Resolving]
  - Contusion [Recovered/Resolved]
  - Drug ineffective [Not Recovered/Not Resolved]

NARRATIVE: CASE EVENT DATE: 20140604
